FAERS Safety Report 5902235-5 (Version None)
Quarter: 2008Q3

REPORT INFORMATION
  Report Type: 
  Country: None (occurrence: None)
  Receive Date: 20080929
  Receipt Date: 20080919
  Transmission Date: 20090109
  Serious: No
  Sender: FDA-Public Use
  Company Number: US-B.I. PHARMACEUTICALS,INC./RIDGEFIELD-2008-BP-14035BP

PATIENT
  Age: 61 Year
  Sex: Male
  Weight: 93 kg

DRUGS (6)
  1. FLOMAX [Suspect]
     Indication: BENIGN PROSTATIC HYPERPLASIA
     Dosage: .4MG
  2. FLOMAX [Suspect]
     Indication: URINARY TRACT DISORDER
  3. PREVACID [Concomitant]
  4. ASPIRIN [Concomitant]
  5. VITAMINS [Concomitant]
  6. VITAMIN E [Concomitant]

REACTIONS (1)
  - DIZZINESS [None]
